FAERS Safety Report 19737186 (Version 2)
Quarter: 2022Q2

REPORT INFORMATION
  Report Type: Spontaneous
  Country: BE (occurrence: BE)
  Receive Date: 20210824
  Receipt Date: 20220409
  Transmission Date: 20220721
  Serious: Yes (Hospitalization, Other)
  Sender: FDA-Public Use
  Company Number: BE-LUPIN PHARMACEUTICALS INC.-2021-15604

PATIENT
  Age: 33 Year
  Sex: Female

DRUGS (8)
  1. LORAZEPAM [Interacting]
     Active Substance: LORAZEPAM
     Indication: Catatonia
     Dosage: 7 MILLIGRAM, QD,  DIVIDED IN 4 DOSES
     Route: 042
  2. LORAZEPAM [Interacting]
     Active Substance: LORAZEPAM
     Dosage: 2.5 MILLIGRAM, QD, OVER 5 DAYS
     Route: 065
  3. VALPROATE [Interacting]
     Active Substance: VALPROIC ACID
     Indication: Drug therapy
     Dosage: UNK, INITIAL DOSE NOT STATED
     Route: 065
  4. VALPROATE [Interacting]
     Active Substance: VALPROIC ACID
     Dosage: 800 MILLIGRAM, QD, GRADUALLY INCREASED TO 800MG PER DAY DIVIDED IN 2 DOSES
     Route: 065
  5. CLOZAPINE [Concomitant]
     Active Substance: CLOZAPINE
     Indication: Product used for unknown indication
     Dosage: 50 MILLIGRAM
     Route: 065
  6. LITHIUM [Concomitant]
     Active Substance: LITHIUM
     Indication: Product used for unknown indication
     Dosage: 600 MILLIGRAM
     Route: 065
  7. ARIPIPRAZOLE [Concomitant]
     Active Substance: ARIPIPRAZOLE
     Indication: Product used for unknown indication
     Dosage: 15 MILLIGRAM
     Route: 065
  8. ARIPIPRAZOLE [Concomitant]
     Active Substance: ARIPIPRAZOLE
     Dosage: UNK, DOSE HALVED
     Route: 065

REACTIONS (4)
  - Metabolic encephalopathy [Recovered/Resolved]
  - Stupor [Recovered/Resolved]
  - Drug interaction [Unknown]
  - Off label use [Unknown]
